FAERS Safety Report 4732166-8 (Version None)
Quarter: 2005Q3

REPORT INFORMATION
  Report Type: 
  Country: None (occurrence: None)
  Receive Date: 20050725
  Receipt Date: 20030618
  Transmission Date: 20060218
  Serious: Yes (Death)
  Sender: FDA-Public Use
  Company Number: USA-2003-0008190

PATIENT
  Age: 46 Year
  Sex: Female

DRUGS (5)
  1. MORPHINE SULFATE [Suspect]
     Route: 065
  2. DIAZEPAM [Suspect]
     Route: 065
  3. SALICYLATES (SALICYLATES) [Suspect]
     Route: 065
  4. DIPHENHYDRAMINE HCL [Suspect]
     Route: 065
  5. HYDROCODONE BITARTRATE [Suspect]
     Route: 065

REACTIONS (2)
  - INTENTIONAL MISUSE [None]
  - MULTIPLE DRUG OVERDOSE [None]
